FAERS Safety Report 20551138 (Version 1)
Quarter: 2022Q1

REPORT INFORMATION
  Report Type: Report from Study
  Country: CA (occurrence: CA)
  Receive Date: 20220304
  Receipt Date: 20220304
  Transmission Date: 20220423
  Serious: Yes (Death)
  Sender: FDA-Public Use
  Company Number: CA-JNJFOC-20211267039

PATIENT
  Age: 54 Year
  Sex: Female

DRUGS (15)
  1. BOSENTAN [Suspect]
     Active Substance: BOSENTAN
     Indication: Pulmonary hypertension
     Route: 065
     Dates: start: 20190215, end: 20211230
  2. BOSENTAN [Suspect]
     Active Substance: BOSENTAN
     Indication: Heart disease congenital
  3. TADALAFIL [Concomitant]
     Active Substance: TADALAFIL
  4. REMODULIN [Concomitant]
     Active Substance: TREPROSTINIL
  5. AMIODARONE [Concomitant]
     Active Substance: AMIODARONE
  6. GABAPENTIN [Concomitant]
     Active Substance: GABAPENTIN
  7. DILTIAZEM [Concomitant]
     Active Substance: DILTIAZEM
  8. FUROSEMIDE [Concomitant]
     Active Substance: FUROSEMIDE
  9. TYLENOL [Concomitant]
     Active Substance: ACETAMINOPHEN
  10. PRADAXA [Concomitant]
     Active Substance: DABIGATRAN ETEXILATE MESYLATE
  11. FLOVENT [Concomitant]
     Active Substance: FLUTICASONE PROPIONATE
  12. SPIRONOLACTONE [Concomitant]
     Active Substance: SPIRONOLACTONE
  13. AMBRISENTAN [Concomitant]
     Active Substance: AMBRISENTAN
  14. POTASSIUM [Concomitant]
     Active Substance: POTASSIUM
  15. IRON\VITAMINS [Concomitant]
     Active Substance: IRON\VITAMINS

REACTIONS (2)
  - Death [Fatal]
  - Hepatic enzyme increased [Not Recovered/Not Resolved]
